FAERS Safety Report 4450482-4 (Version None)
Quarter: 2004Q3

REPORT INFORMATION
  Report Type: 
  Country: None (occurrence: None)
  Receive Date: 20040914
  Receipt Date: 20040830
  Transmission Date: 20050211
  Serious: Yes (Hospitalization)
  Sender: FDA-Public Use
  Company Number: DSA_81054_2004

PATIENT
  Age: 48 Year
  Sex: Female

DRUGS (6)
  1. XYREM [Suspect]
     Indication: FIBROMYALGIA
     Dates: start: 20040828, end: 20040830
  2. XYREM [Suspect]
     Indication: HEADACHE
     Dates: start: 20040828, end: 20040830
  3. XYREM [Suspect]
     Indication: SLEEP DISORDER
     Dates: start: 20040828, end: 20040830
  4. MS CONTIN [Suspect]
     Indication: HEADACHE
     Dosage: 60 MG TID PO
     Route: 048
  5. ATENOLOL [Concomitant]
  6. ZEROSEN [Concomitant]

REACTIONS (11)
  - CONFUSIONAL STATE [None]
  - CONVULSION [None]
  - DEPRESSED LEVEL OF CONSCIOUSNESS [None]
  - DISORIENTATION [None]
  - DRUG INEFFECTIVE [None]
  - DRUG WITHDRAWAL SYNDROME [None]
  - HYPOTENSION [None]
  - INSOMNIA [None]
  - MEDICATION ERROR [None]
  - OVERDOSE [None]
  - RESPIRATORY DEPRESSION [None]
